FAERS Safety Report 5565309-7 (Version None)
Quarter: 2007Q4

REPORT INFORMATION
  Report Type: 
  Country: None (occurrence: None)
  Receive Date: 20071218
  Receipt Date: 20030205
  Transmission Date: 20080405
  Serious: Yes (Death, Hospitalization)
  Sender: FDA-Public Use
  Company Number: CA-ROCHE-330993

PATIENT
  Age: 69 Year
  Sex: Male

DRUGS (6)
  1. TRETINOIN [Suspect]
     Indication: ACUTE PROMYELOCYTIC LEUKAEMIA
     Dosage: INTERMITTENT THERAPY OF 28 DAYS OF TREATMENT FOLLOWED BY 7 DAYS REST FOR THREE CYCLES.
     Route: 048
  2. TRETINOIN [Suspect]
     Route: 048
  3. TRETINOIN [Suspect]
     Route: 048
  4. DAUNORUBICIN HCL [Concomitant]
     Indication: ACUTE PROMYELOCYTIC LEUKAEMIA
  5. CYTARABINE [Concomitant]
     Dosage: SECOND THERAPY 70 MG ALTERNATING ON MONDAYS, WEDNESDAYS AND FRIDAYS.
  6. METHOTREXATE [Concomitant]
     Indication: ACUTE PROMYELOCYTIC LEUKAEMIA
     Dosage: ON MONDAYS, WEDNESDAYS AND FRIDAYS.

REACTIONS (2)
  - ACUTE PROMYELOCYTIC LEUKAEMIA [None]
  - HAEMORRHAGE INTRACRANIAL [None]
